FAERS Safety Report 16356556 (Version 2)
Quarter: 2019Q3

REPORT INFORMATION
  Report Type: Spontaneous
  Country: PT (occurrence: PT)
  Receive Date: 20190527
  Receipt Date: 20190827
  Transmission Date: 20191004
  Serious: Yes (Hospitalization, Other)
  Sender: FDA-Public Use
  Company Number: PT-SA-2019SA137308

PATIENT
  Age: 73 Year
  Sex: Female

DRUGS (4)
  1. LOSARTAN. [Suspect]
     Active Substance: LOSARTAN
     Indication: HYPERTENSION
     Dosage: UNK
     Route: 048
  2. SIMVASTATIN. [Suspect]
     Active Substance: SIMVASTATIN
     Indication: DYSLIPIDAEMIA
     Dosage: UNK
     Route: 048
  3. METFORMIN HYDROCHLORIDE. [Suspect]
     Active Substance: METFORMIN HYDROCHLORIDE
     Indication: TYPE 2 DIABETES MELLITUS
     Dosage: UNK
  4. INDAPAMIDE. [Suspect]
     Active Substance: INDAPAMIDE
     Indication: HYPERTENSION
     Dosage: UNK

REACTIONS (21)
  - Bradypnoea [Unknown]
  - Palpitations [Unknown]
  - Extensor plantar response [Unknown]
  - Consciousness fluctuating [Unknown]
  - Tricuspid valve incompetence [Unknown]
  - Altered state of consciousness [Unknown]
  - Depressed level of consciousness [Unknown]
  - Atrioventricular block complete [Unknown]
  - Cerebral artery occlusion [Unknown]
  - Headache [Unknown]
  - Nausea [Unknown]
  - Hyperhidrosis [Unknown]
  - Apnoea [Unknown]
  - Pulmonary hypertension [Unknown]
  - Bradycardia [Unknown]
  - Stupor [Unknown]
  - Mydriasis [Unknown]
  - Confusional state [Unknown]
  - Atrioventricular block second degree [Unknown]
  - Hypotension [Unknown]
  - Aphasia [Unknown]
